FAERS Safety Report 15944390 (Version 1)
Quarter: 2019Q1

REPORT INFORMATION
  Report Type: Spontaneous
  Country: US (occurrence: US)
  Receive Date: 20190118
  Receipt Date: 20190118
  Transmission Date: 20190417
  Serious: No
  Sender: FDA-Public Use
  Company Number: None

PATIENT
  Age: 48 Year
  Sex: Female

DRUGS (1)
  1. ENBREL [Suspect]
     Active Substance: ETANERCEPT
     Indication: RHEUMATOID ARTHRITIS
     Dates: start: 201801

REACTIONS (4)
  - Skin ulcer [None]
  - Contusion [None]
  - Injection site pain [None]
  - Injection site haemorrhage [None]

NARRATIVE: CASE EVENT DATE: 20180101
